FAERS Safety Report 6861876-1 (Version None)
Quarter: 2010Q3

REPORT INFORMATION
  Report Type: 
  Country: None (occurrence: None)
  Receive Date: 20100721
  Receipt Date: 20100712
  Transmission Date: 20110219
  Serious: No
  Sender: FDA-Public Use
  Company Number: 2010BI001167

PATIENT
  Sex: Female

DRUGS (2)
  1. TYSABRI [Suspect]
     Indication: MULTIPLE SCLEROSIS
     Route: 042
     Dates: start: 20081002, end: 20090420
  2. TYSABRI [Suspect]
     Route: 042
     Dates: start: 20090605

REACTIONS (5)
  - COLD SWEAT [None]
  - DEPRESSION [None]
  - HYPERHIDROSIS [None]
  - NIGHT SWEATS [None]
  - TEMPERATURE INTOLERANCE [None]
